FAERS Safety Report 10682508 (Version 2)
Quarter: 2014Q4

REPORT INFORMATION
  Report Type: Report from Study
  Country: US (occurrence: US)
  Receive Date: 20141230
  Receipt Date: 20141230
  Transmission Date: 20150529
  Serious: Yes (Other)
  Sender: FDA-Public Use
  Company Number: US-SA-2014SA092255

PATIENT
  Age: 64 Year
  Sex: Female

DRUGS (1)
  1. AUBAGIO [Suspect]
     Active Substance: TERIFLUNOMIDE
     Indication: MULTIPLE SCLEROSIS
     Route: 048
     Dates: start: 20140616

REACTIONS (9)
  - Fear of falling [Unknown]
  - Surgery [Unknown]
  - Gait disturbance [Unknown]
  - Pain [Unknown]
  - Hypokinesia [Unknown]
  - Musculoskeletal stiffness [Unknown]
  - Discomfort [Unknown]
  - Tremor [Unknown]
  - Fall [Unknown]

NARRATIVE: CASE EVENT DATE: 201412
